FAERS Safety Report 7988989-5 (Version None)
Quarter: 2011Q4

REPORT INFORMATION
  Report Type: 
  Country: None (occurrence: None)
  Receive Date: 20111219
  Receipt Date: 20111213
  Transmission Date: 20120403
  Serious: Yes (Other)
  Sender: FDA-Public Use
  Company Number: PHHO2011FR020816

PATIENT
  Sex: Male
  Weight: 62.2 kg

DRUGS (9)
  1. PREDNISOLONE [Concomitant]
     Indication: RENAL TRANSPLANT
     Dosage: 20 MG, QD
  2. FERROUS FUMARATE [Concomitant]
     Indication: ANAEMIA
     Dosage: 200 MG, BID
     Route: 048
     Dates: start: 20111130
  3. TENORMIN [Concomitant]
     Indication: HYPERTENSION
     Dosage: 25 MG, QD
     Route: 048
     Dates: start: 20111127
  4. MYFORTIC [Suspect]
     Indication: RENAL TRANSPLANT
     Dosage: 720 MG, BID
     Dates: start: 20111123
  5. OMEPRAZOLE [Concomitant]
     Indication: PROPHYLAXIS AGAINST GASTROINTESTINAL ULCER
     Dosage: 20 MG, QD
     Route: 048
     Dates: start: 20111124
  6. BACTRIM [Concomitant]
     Indication: PROPHYLAXIS
     Dosage: 400 MG, QD
     Route: 048
     Dates: start: 20111125
  7. PROGRAF [Suspect]
     Indication: RENAL TRANSPLANT
     Dosage: 5 MG, BID
     Dates: start: 20111123
  8. LEXOMIL [Concomitant]
     Indication: ANXIETY
     Dosage: 6 MG, FOUR
     Dates: start: 20111126
  9. VALGANCICLOVIR [Concomitant]
     Indication: ANTIVIRAL PROPHYLAXIS
     Dosage: 450 MG, QD
     Route: 048
     Dates: start: 20111125

REACTIONS (1)
  - PHLEBITIS [None]
